FAERS Safety Report 12477022 (Version 5)
Quarter: 2016Q3

REPORT INFORMATION
  Report Type: Spontaneous
  Country: US (occurrence: US)
  Receive Date: 20160617
  Receipt Date: 20160719
  Transmission Date: 20161109
  Serious: Yes (Hospitalization, Other)
  Sender: FDA-Public Use
  Company Number: US-PFIZER INC-2014198555

PATIENT
  Age: 24 Year
  Sex: Female

DRUGS (6)
  1. CLOFARABINE [Interacting]
     Active Substance: CLOFARABINE
     Indication: ACUTE LEUKAEMIA
     Dosage: 40 MG/M2, CYCLIC (ON DAYS 5-9)
  2. IDARUBICIN [Concomitant]
     Active Substance: IDARUBICIN
     Dosage: UNK
  3. METHOTREXATE. [Interacting]
     Active Substance: METHOTREXATE
     Dosage: UNK, CYCLIC (ON DAY 12)
     Route: 037
  4. CYTARABINE. [Concomitant]
     Active Substance: CYTARABINE
     Dosage: 1 G/M2 CYCLIC, ON DAYS 5-9
  5. METHOTREXATE. [Suspect]
     Active Substance: METHOTREXATE
     Indication: ACUTE LEUKAEMIA
     Dosage: 3.5 G/M2, CYCLIC(ON DAY 1)
     Route: 042
  6. METHOTREXATE. [Interacting]
     Active Substance: METHOTREXATE
     Dosage: UNK UNK, 1X/DAY (3.5 GRAM/SQUARE METER)
     Route: 037

REACTIONS (4)
  - Encephalopathy [Recovered/Resolved]
  - Dysarthria [Recovered/Resolved]
  - Hemiparesis [Recovered/Resolved]
  - Drug interaction [Recovered/Resolved]
